FAERS Safety Report 24533865 (Version 1)
Quarter: 2024Q4

REPORT INFORMATION
  Report Type: Spontaneous
  Country: IN (occurrence: IN)
  Receive Date: 20241022
  Receipt Date: 20241022
  Transmission Date: 20250115
  Serious: Yes (Other)
  Sender: CHEPLAPHARM
  Company Number: IN-CHEPLA-2024013209

PATIENT
  Age: 4 Month
  Sex: Female

DRUGS (1)
  1. GANCICLOVIR [Suspect]
     Active Substance: GANCICLOVIR
     Indication: Cytomegalovirus chorioretinitis
     Dosage: (10 MG/KG/DAY FOR 6 WEEKS)
     Route: 042

REACTIONS (6)
  - Optic atrophy [Unknown]
  - Retinal degeneration [Unknown]
  - Combined immunodeficiency [Unknown]
  - Vascular calcification [Unknown]
  - Blister [Unknown]
  - Pyrexia [Unknown]
